FAERS Safety Report 8009917-2 (Version None)
Quarter: 2011Q4

REPORT INFORMATION
  Report Type: 
  Country: None (occurrence: None)
  Receive Date: 20111228
  Receipt Date: 20111220
  Transmission Date: 20120403
  Serious: Yes (Other)
  Sender: FDA-Public Use
  Company Number: PHHY2011AR111645

PATIENT
  Sex: Female

DRUGS (2)
  1. NABILA [Concomitant]
     Dosage: UNK
  2. DIOVAN [Suspect]
     Indication: HYPERTENSION
     Dosage: 160 MG, DAILY
     Dates: start: 20111101

REACTIONS (2)
  - CORONARY ARTERY DISEASE [None]
  - HYPERTENSION [None]
